FAERS Safety Report 11024678 (Version 1)
Quarter: 2015Q2

REPORT INFORMATION
  Report Type: Spontaneous
  Country: US (occurrence: None)
  Receive Date: 20150413
  Receipt Date: 20150413
  Transmission Date: 20150821
  Serious: No
  Sender: FDA-Public Use
  Company Number: None

PATIENT
  Age: 70 Year
  Sex: Male
  Weight: 90.72 kg

DRUGS (2)
  1. METHYLISOTHIAZOLINONE [Suspect]
     Active Substance: METHYLISOTHIAZOLINONE
     Indication: PRODUCT FORMULATION ISSUE
     Dosage: NONEPRESCRIPTION IN SHAMPOOS
     Route: 061
  2. EUCERIN [Suspect]
     Active Substance: ENSULIZOLE\EUCERIN\OCTINOXATE\OCTISALATE\TITANIUM DIOXIDE\ZINC OXIDE

REACTIONS (3)
  - Reaction to preservatives [None]
  - Skin cancer [None]
  - Blood pressure increased [None]

NARRATIVE: CASE EVENT DATE: 20100105
